FAERS Safety Report 13610226 (Version 2)
Quarter: 2017Q2

REPORT INFORMATION
  Report Type: Spontaneous
  Country: JP (occurrence: JP)
  Receive Date: 20170604
  Receipt Date: 20170628
  Transmission Date: 20170830
  Serious: Yes (Other)
  Sender: FDA-Public Use
  Company Number: JP-CONCORDIA PHARMACEUTICALS INC.-E2B_00008143

PATIENT
  Age: 45 Year
  Sex: Male
  Weight: 83 kg

DRUGS (5)
  1. PREDNISOLONE. [Suspect]
     Active Substance: PREDNISOLONE
     Indication: HISTIOCYTOSIS HAEMATOPHAGIC
  2. PREDNISOLONE. [Suspect]
     Active Substance: PREDNISOLONE
  3. PREDNISOLONE. [Suspect]
     Active Substance: PREDNISOLONE
  4. PREDNISOLONE. [Suspect]
     Active Substance: PREDNISOLONE
  5. PREDNISOLONE. [Suspect]
     Active Substance: PREDNISOLONE

REACTIONS (1)
  - Osteonecrosis [Unknown]
